FAERS Safety Report 20347382 (Version 1)
Quarter: 2022Q1

REPORT INFORMATION
  Report Type: Spontaneous
  Country: US (occurrence: None)
  Receive Date: 20220118
  Receipt Date: 20220118
  Transmission Date: 20220423
  Serious: No
  Sender: FDA-Public Use
  Company Number: None

PATIENT
  Sex: Female

DRUGS (1)
  1. KESIMPTA [Suspect]
     Active Substance: OFATUMUMAB
     Indication: Multiple sclerosis
     Dosage: 20MG/0.4ML  MONTHLY UNDER THE SKIN?
     Route: 058
     Dates: start: 20211220

REACTIONS (5)
  - Rash pruritic [None]
  - Rash [None]
  - Lip exfoliation [None]
  - Hypersensitivity [None]
  - Headache [None]
